FAERS Safety Report 5040049-1 (Version None)
Quarter: 2006Q2

REPORT INFORMATION
  Report Type: 
  Country: None (occurrence: None)
  Receive Date: 20060630
  Receipt Date: 20060619
  Transmission Date: 20061013
  Serious: Yes (Hospitalization)
  Sender: FDA-Public Use
  Company Number: 2006AP02852

PATIENT
  Age: 23937 Day
  Sex: Female

DRUGS (9)
  1. IRESSA [Suspect]
     Indication: NON-SMALL CELL LUNG CANCER STAGE IV
     Route: 048
     Dates: start: 20060407
  2. IRESSA [Suspect]
     Indication: LUNG ADENOCARCINOMA STAGE IV
     Route: 048
     Dates: start: 20060407
  3. MUCOSOLVAN [Concomitant]
     Route: 048
  4. RESPLEN [Concomitant]
     Route: 048
  5. NORVASC [Concomitant]
     Route: 048
  6. NACID [Concomitant]
     Route: 048
  7. FARLUTAL [Concomitant]
     Route: 048
  8. CETIRIZINE HCL [Concomitant]
     Route: 048
  9. REGROW [Concomitant]
     Route: 048

REACTIONS (2)
  - DYSPNOEA [None]
  - PNEUMOTHORAX [None]
